FAERS Safety Report 8010317-X (Version None)
Quarter: 2011Q4

REPORT INFORMATION
  Report Type: 
  Country: None (occurrence: None)
  Receive Date: 20111228
  Receipt Date: 20111219
  Transmission Date: 20120403
  Serious: Yes (Other)
  Sender: FDA-Public Use
  Company Number: JP-ASTELLAS-2011JP009488

PATIENT
  Age: 25 Year
  Sex: Male

DRUGS (3)
  1. PROGRAF [Suspect]
     Dosage: 4.5 MG, UNKNOWN/D
     Route: 065
  2. PROGRAF [Suspect]
     Dosage: 5 MG, UNKNOWN/D
     Route: 065
  3. PROGRAF [Suspect]
     Dosage: 3 MG, UNKNOWN/D
     Route: 065

REACTIONS (2)
  - DRUG INEFFECTIVE [None]
  - CHRONIC GRAFT VERSUS HOST DISEASE [None]
